FAERS Safety Report 20569435 (Version 2)
Quarter: 2024Q3

REPORT INFORMATION
  Report Type: Spontaneous
  Country: US (occurrence: None)
  Receive Date: 20220309
  Receipt Date: 20240701
  Transmission Date: 20241016
  Serious: No
  Sender: ASTRAZENECA
  Company Number: 2022A064849

PATIENT
  Age: 928 Month
  Sex: Female
  Weight: 107.5 kg

DRUGS (1)
  1. SYMBICORT [Suspect]
     Active Substance: BUDESONIDE\FORMOTEROL FUMARATE DIHYDRATE
     Indication: Asthma
     Dosage: 160/4.5MCG 2 PUFFS, TWO TIMES A DAY
     Route: 055

REACTIONS (8)
  - Overdose [Unknown]
  - Dyspnoea [Unknown]
  - Sinus disorder [Not Recovered/Not Resolved]
  - Asthma [Recovered/Resolved]
  - Intentional product use issue [Not Recovered/Not Resolved]
  - Device use issue [Unknown]
  - Incorrect dose administered by device [Unknown]
  - Device malfunction [Unknown]

NARRATIVE: CASE EVENT DATE: 20220201
